FAERS Safety Report 9950177 (Version 1)
Quarter: 2014Q1

REPORT INFORMATION
  Report Type: Spontaneous
  Country: US (occurrence: US)
  Receive Date: 20140304
  Receipt Date: 20140304
  Transmission Date: 20141002
  Serious: No
  Sender: FDA-Public Use
  Company Number: US-AMGEN-USASP2013079994

PATIENT
  Age: 52 Year
  Sex: Female
  Weight: 83.9 kg

DRUGS (8)
  1. ENBREL [Suspect]
     Indication: PRODUCT USED FOR UNKNOWN INDICATION
     Dosage: 50 MG, ONCE A WEEK
     Route: 058
  2. CIMZIA [Concomitant]
     Dosage: UNK
  3. PLAQUENIL                          /00072603/ [Concomitant]
     Dosage: 200 MG, UNK
  4. NAPROXEN [Concomitant]
     Dosage: 500 MG, UNK
  5. LISINOPRIL [Concomitant]
     Dosage: 5 MG, UNK
  6. TRIAMTERENE AND HYDROCHLOROTHIAZIDE [Concomitant]
     Dosage: 37.5 -25, UNK, UNK
  7. MULTIVITAMINS, PLAIN [Concomitant]
     Dosage: UNK
  8. CALCIUM CITRATE + D [Concomitant]
     Dosage: UNK

REACTIONS (1)
  - Therapeutic response decreased [Unknown]
